FAERS Safety Report 12156696 (Version 3)
Quarter: 2016Q2

REPORT INFORMATION
  Report Type: Spontaneous
  Country: US (occurrence: US)
  Receive Date: 20160307
  Receipt Date: 20160503
  Transmission Date: 20160815
  Serious: Yes (Other)
  Sender: FDA-Public Use
  Company Number: US-GILEAD-2016-0201646

PATIENT
  Age: 43 Year
  Sex: Male
  Weight: 97.5 kg

DRUGS (4)
  1. GENVOYA [Suspect]
     Active Substance: COBICISTAT\ELVITEGRAVIR\EMTRICITABINE\TENOFOVIR ALAFENAMIDE FUMARATE
     Indication: HIV INFECTION
     Dosage: 1 DF, QD
     Route: 048
     Dates: start: 20151202
  2. IBUPROFEN. [Concomitant]
     Active Substance: IBUPROFEN
  3. NICOTINE. [Concomitant]
     Active Substance: NICOTINE
  4. ALPRAZOLAM. [Concomitant]
     Active Substance: ALPRAZOLAM

REACTIONS (3)
  - Drug ineffective [Unknown]
  - Viral load increased [Recovered/Resolved]
  - Wrong technique in product usage process [Unknown]

NARRATIVE: CASE EVENT DATE: 20160226
